FAERS Safety Report 9299123 (Version 4)
Quarter: 2014Q3

REPORT INFORMATION
  Report Type: Spontaneous
  Country: US (occurrence: US)
  Receive Date: 20130520
  Receipt Date: 20140811
  Transmission Date: 20150326
  Serious: Yes (Disabling)
  Sender: FDA-Public Use
  Company Number: US-009507513-1305USA010855

PATIENT
  Sex: Female
  Weight: 90.7 kg

DRUGS (1)
  1. NUVARING [Suspect]
     Active Substance: ETHINYL ESTRADIOL\ETONOGESTREL
     Indication: CONTRACEPTION
     Dosage: UNK
     Route: 067
     Dates: start: 200607, end: 2008

REACTIONS (4)
  - Oesophageal dilation procedure [Unknown]
  - Tinnitus [Unknown]
  - Sinus disorder [Unknown]
  - Deep vein thrombosis [Unknown]

NARRATIVE: CASE EVENT DATE: 20081121
